FAERS Safety Report 11403994 (Version 1)
Quarter: 2015Q3

REPORT INFORMATION
  Report Type: Spontaneous
  Country: US (occurrence: None)
  Receive Date: 20150820
  Receipt Date: 20150820
  Transmission Date: 20151125
  Serious: Yes (Hospitalization)
  Sender: FDA-Public Use
  Company Number: None

PATIENT
  Age: 31 Year
  Sex: Female
  Weight: 70.76 kg

DRUGS (4)
  1. MONTELUKAST [Concomitant]
     Active Substance: MONTELUKAST SODIUM
  2. FLUTICASONE [Concomitant]
     Active Substance: FLUTICASONE\FLUTICASONE PROPIONATE
  3. SYRTEC [Concomitant]
  4. ACNE 3 STEP 150G/200ML/50ML CLINIQUE [Suspect]
     Active Substance: BENZOYL PEROXIDE\SALICYLIC ACID
     Indication: ACNE
     Dates: start: 20150730, end: 20150806

REACTIONS (7)
  - Loss of consciousness [None]
  - Colitis [None]
  - Vomiting [None]
  - Acne [None]
  - Product odour abnormal [None]
  - Application site pain [None]
  - Medication residue present [None]

NARRATIVE: CASE EVENT DATE: 20150802
